FAERS Safety Report 13107112 (Version 2)
Quarter: 2017Q1

REPORT INFORMATION
  Report Type: Report from Study
  Country: NL (occurrence: NL)
  Receive Date: 20170111
  Receipt Date: 20170202
  Transmission Date: 20170428
  Serious: Yes (Hospitalization)
  Sender: FDA-Public Use
  Company Number: NL-ROCHE-1877008

PATIENT
  Age: 74 Year
  Sex: Female

DRUGS (3)
  1. OXALIPLATIN. [Suspect]
     Active Substance: OXALIPLATIN
     Indication: COLORECTAL CANCER METASTATIC
     Dosage: CYCLE 1: 07/SEP/2016, CYCLE 2: 28/SEP/2016, CYCLE 3: 27/OCT/2016, CYCLE 4: 23/NOV/2016, CYCLE 5: 17/
     Route: 065
  2. BEVACIZUMAB [Suspect]
     Active Substance: BEVACIZUMAB
     Indication: COLORECTAL CANCER METASTATIC
     Dosage: CYCLE 1: 07/SEP/2016, CYCLE 2: 28/SEP/2016, CYCLE 3: 27/OCT/2016, CYCLE 4: 23/NOV/2016, CYCLE 5: 17/
     Route: 065
  3. CAPECITABINE. [Suspect]
     Active Substance: CAPECITABINE
     Indication: COLORECTAL CANCER METASTATIC
     Dosage: CYCLE 1: 07/SEP/2016, CYCLE 2: 28/SEP/2016, CYCLE 3: 27/OCT/2016, CYCLE 4: 23/NOV/2016, CYCLE 5: 17/
     Route: 065

REACTIONS (1)
  - Duodenal stenosis [Not Recovered/Not Resolved]

NARRATIVE: CASE EVENT DATE: 20161228
